FAERS Safety Report 4333072-3 (Version None)
Quarter: 2004Q2

REPORT INFORMATION
  Report Type: 
  Country: None (occurrence: None)
  Receive Date: 20040402
  Receipt Date: 20040402
  Transmission Date: 20050107
  Serious: Yes (Hospitalization)
  Sender: FDA-Public Use
  Company Number: None

PATIENT
  Sex: Female
  Weight: 19.2 kg

DRUGS (4)
  1. WINRHO SDF [Suspect]
     Indication: THROMBOCYTOPENIA
     Dosage: 1400 MCG X 1 IV
     Route: 042
     Dates: start: 20040306, end: 20040306
  2. BENADRYL [Concomitant]
  3. TYLENOL (CAPLET) [Concomitant]
  4. ATIVAN [Concomitant]
     Dosage: GIVEN AFTER ONSET OF SYMPTOMS

REACTIONS (5)
  - CHILLS [None]
  - DEPRESSED LEVEL OF CONSCIOUSNESS [None]
  - MENTAL STATUS CHANGES [None]
  - MYDRIASIS [None]
  - PUPILLARY REFLEX IMPAIRED [None]
